FAERS Safety Report 10235868 (Version 1)
Quarter: 2014Q2

REPORT INFORMATION
  Report Type: Spontaneous
  Country: US (occurrence: None)
  Receive Date: 20140612
  Receipt Date: 20140612
  Transmission Date: 20141212
  Serious: Yes (Hospitalization)
  Sender: FDA-Public Use
  Company Number: None

PATIENT
  Age: 46 Year
  Sex: Female
  Weight: 94.8 kg

DRUGS (17)
  1. ALEMTUZUMAB [Suspect]
     Indication: MULTIPLE SCLEROSIS
     Route: 042
     Dates: start: 20130414, end: 20130416
  2. SOLUMEDROL [Suspect]
     Route: 042
     Dates: start: 20130414, end: 20130416
  3. ACYCLOVIR [Concomitant]
  4. BACLOFEN [Concomitant]
  5. BOTOX [Concomitant]
  6. CYMBALTA [Concomitant]
  7. OXCARBAMAZEPINE [Concomitant]
  8. CLONAZEPAM [Concomitant]
  9. LYRICA [Concomitant]
  10. MORPHINE [Concomitant]
  11. PROVIGIL [Concomitant]
  12. MECLIZINE [Concomitant]
  13. VITAMIN D [Concomitant]
  14. TICANIDINE [Concomitant]
  15. HYDROXYZINE [Concomitant]
  16. DEMEROL [Concomitant]
  17. METOPROLOL [Concomitant]

REACTIONS (6)
  - Chest pain [None]
  - Oedema [None]
  - Peripheral swelling [None]
  - Foreign body [None]
  - Device dislocation [None]
  - Arterial disorder [None]
